FAERS Safety Report 15013773 (Version 4)
Quarter: 2018Q4

REPORT INFORMATION
  Report Type: Spontaneous
  Country: US (occurrence: US)
  Receive Date: 20180614
  Receipt Date: 20181218
  Transmission Date: 20190204
  Serious: Yes (Hospitalization, Disabling)
  Sender: FDA-Public Use
  Company Number: US-OTSUKA-2018_015359

PATIENT
  Sex: Female

DRUGS (5)
  1. ABILIFY [Suspect]
     Active Substance: ARIPIPRAZOLE
     Indication: POST-TRAUMATIC STRESS DISORDER
     Dosage: 10 MG, QD
     Route: 065
  2. ABILIFY [Suspect]
     Active Substance: ARIPIPRAZOLE
     Dosage: 15 MG, QD
     Route: 065
  3. ABILIFY [Suspect]
     Active Substance: ARIPIPRAZOLE
     Indication: ANXIETY
     Dosage: 5 MG, QD
     Route: 065
  4. ABILIFY [Suspect]
     Active Substance: ARIPIPRAZOLE
     Indication: BIPOLAR DISORDER
     Dosage: 2 MG, QD
     Route: 065
     Dates: start: 2004
  5. ARIPIPRAZOLE. [Concomitant]
     Active Substance: ARIPIPRAZOLE
     Indication: PRODUCT USED FOR UNKNOWN INDICATION
     Dosage: UNK
     Route: 065
     Dates: start: 20150706, end: 20180114

REACTIONS (26)
  - Mental impairment [Unknown]
  - Mental disorder [Unknown]
  - Injury [Unknown]
  - Pain [Unknown]
  - Theft [Not Recovered/Not Resolved]
  - Anhedonia [Unknown]
  - Gambling disorder [Not Recovered/Not Resolved]
  - Social problem [Unknown]
  - Unintended pregnancy [Unknown]
  - Shoplifting [Not Recovered/Not Resolved]
  - Compulsive shopping [Not Recovered/Not Resolved]
  - Condition aggravated [Not Recovered/Not Resolved]
  - Fear [Unknown]
  - Economic problem [Unknown]
  - Sexual dysfunction [Not Recovered/Not Resolved]
  - Obsessive-compulsive disorder [Not Recovered/Not Resolved]
  - Compulsive sexual behaviour [Not Recovered/Not Resolved]
  - Bankruptcy [Unknown]
  - Emotional distress [Unknown]
  - Anxiety [Unknown]
  - Disability [Unknown]
  - Physical disability [Unknown]
  - Eating disorder [Not Recovered/Not Resolved]
  - Compulsive hoarding [Not Recovered/Not Resolved]
  - Product use in unapproved indication [Unknown]
  - Personal relationship issue [Unknown]

NARRATIVE: CASE EVENT DATE: 2005
